FAERS Safety Report 4844937-8 (Version None)
Quarter: 2005Q4

REPORT INFORMATION
  Report Type: 
  Country: None (occurrence: None)
  Receive Date: 20051205
  Receipt Date: 20051123
  Transmission Date: 20060501
  Serious: Yes (Other)
  Sender: FDA-Public Use
  Company Number: GB-BRISTOL-MYERS SQUIBB COMPANY-13196548

PATIENT
  Age: 67 Year
  Sex: Male

DRUGS (5)
  1. ARIPIPRAZOLE [Suspect]
     Indication: SCHIZOPHRENIA
     Route: 048
  2. CLONAZEPAM [Concomitant]
  3. PROPRANOLOL [Concomitant]
  4. TEMAZEPAM [Concomitant]
  5. PROPYLTHIOURACIL [Concomitant]

REACTIONS (4)
  - AGITATION [None]
  - DELUSION [None]
  - FLUSHING [None]
  - PSYCHOTIC DISORDER [None]
